FAERS Safety Report 16337087 (Version 1)
Quarter: 2019Q2

REPORT INFORMATION
  Report Type: Spontaneous
  Country: US (occurrence: US)
  Receive Date: 20190520
  Receipt Date: 20190520
  Transmission Date: 20190711
  Serious: Yes (Other)
  Sender: FDA-Public Use
  Company Number: None

PATIENT
  Age: 55 Year
  Sex: Female
  Weight: 58.5 kg

DRUGS (8)
  1. TRETINOIN. [Concomitant]
     Active Substance: TRETINOIN
  2. IMITREX [Concomitant]
     Active Substance: SUMATRIPTAN SUCCINATE
  3. VOLTAREN [Concomitant]
     Active Substance: DICLOFENAC SODIUM
  4. LEVOTHYROXINE. [Suspect]
     Active Substance: LEVOTHYROXINE
     Indication: HYPOTHYROIDISM
     Dosage: ?          QUANTITY:1 TABLET(S);?
     Route: 048
     Dates: start: 20190404, end: 20190515
  5. MAGNESIUM [Concomitant]
     Active Substance: MAGNESIUM
  6. DIAZEPAM. [Concomitant]
     Active Substance: DIAZEPAM
  7. VITAMIN D [Concomitant]
     Active Substance: VITAMIN D NOS
  8. MULTIVITAMIN [Concomitant]
     Active Substance: VITAMINS

REACTIONS (9)
  - Vision blurred [None]
  - Abnormal dreams [None]
  - Clumsiness [None]
  - Eye pain [None]
  - Confusional state [None]
  - Dyspnoea [None]
  - Peripheral swelling [None]
  - Feeling abnormal [None]
  - Joint swelling [None]

NARRATIVE: CASE EVENT DATE: 20190515
